FAERS Safety Report 18617241 (Version 1)
Quarter: 2020Q4

REPORT INFORMATION
  Report Type: Spontaneous
  Country: US (occurrence: US)
  Receive Date: 20201214
  Receipt Date: 20201214
  Transmission Date: 20210114
  Serious: Yes (Hospitalization)
  Sender: FDA-Public Use
  Company Number: None

PATIENT
  Age: 37 Year
  Sex: Female

DRUGS (5)
  1. HUMIRA [Suspect]
     Active Substance: ADALIMUMAB
     Indication: ANKYLOSING SPONDYLITIS
     Route: 058
     Dates: start: 20201021
  2. ISIBLOOM [Concomitant]
     Active Substance: DESOGESTREL\ETHINYL ESTRADIOL
  3. CELECOXIB. [Concomitant]
     Active Substance: CELECOXIB
  4. OXYCODONE [Concomitant]
     Active Substance: OXYCODONE
  5. POT CHLORIDE ER [Concomitant]

REACTIONS (2)
  - Blood potassium decreased [None]
  - Condition aggravated [None]

NARRATIVE: CASE EVENT DATE: 202011
